FAERS Safety Report 8984209 (Version 1)
Quarter: 2012Q4

REPORT INFORMATION
  Report Type: 
  Country: CA (occurrence: CA)
  Receive Date: 20121226
  Receipt Date: 20121226
  Transmission Date: 20130627
  Serious: Yes (Other)
  Sender: FDA-Public Use
  Company Number: PHHY2012CA116361

PATIENT
  Sex: Male

DRUGS (3)
  1. AFINITOR [Suspect]
     Indication: NEUROENDOCRINE CARCINOMA METASTATIC
     Dosage: 10 mg, QID
     Route: 048
     Dates: start: 20120829
  2. AFINITOR [Suspect]
     Dosage: 10 UNK, UNK
     Dates: start: 201211
  3. SANDOSTATIN [Suspect]
     Dosage: 50 mg Every 4 weeks
     Route: 030

REACTIONS (6)
  - Asthma [Recovered/Resolved]
  - Respiratory disorder [Unknown]
  - Depression [Unknown]
  - Fatigue [Unknown]
  - Headache [Unknown]
  - Acne [Unknown]
